FAERS Safety Report 13871771 (Version 3)
Quarter: 2020Q3

REPORT INFORMATION
  Report Type: Report from Study
  Country: HK (occurrence: HK)
  Receive Date: 20170816
  Receipt Date: 20171019
  Transmission Date: 20201105
  Serious: Yes (Death, Life-Threatening, Hospitalization, Other)
  Sender: FDA-Public Use
  Company Number: HK-ASTRAZENECA-2016SF04911

PATIENT
  Age: 17857 Day
  Sex: Male

DRUGS (21)
  1. TREMELIMUMAB. [Suspect]
     Active Substance: TREMELIMUMAB
     Indication: NON-SMALL CELL LUNG CANCER
     Route: 042
     Dates: end: 20161003
  2. NAPROSYN [Concomitant]
     Active Substance: NAPROXEN
     Indication: TUMOUR ASSOCIATED FEVER
     Route: 048
  3. PARACETAMOL [Concomitant]
     Active Substance: ACETAMINOPHEN
     Indication: TUMOUR ASSOCIATED FEVER
     Route: 048
  4. HYDROCORTISONE. [Concomitant]
     Active Substance: HYDROCORTISONE
     Indication: PNEUMONITIS
     Dosage: 100.0MG ONCE/SINGLE ADMINISTRATION
     Route: 042
     Dates: start: 20160930, end: 20160930
  5. PREDNISOLONE. [Concomitant]
     Active Substance: PREDNISOLONE
     Indication: ALLERGY PROPHYLAXIS
     Dosage: 40 MG, 12 HOUR BEFORE EXAMINATION AND 2 HOUR BEFORE EXAMINATION
     Route: 048
     Dates: start: 20160909, end: 20160910
  6. TAZOCIN [Concomitant]
     Active Substance: PIPERACILLIN SODIUM\TAZOBACTAM SODIUM
     Indication: PROPHYLAXIS
     Dosage: 4.50 G Q8H
     Route: 042
     Dates: start: 20161001, end: 20161006
  7. MEDI4736 [Suspect]
     Active Substance: DURVALUMAB
     Indication: NON-SMALL CELL LUNG CANCER
     Route: 042
     Dates: end: 20161003
  8. CODEINE PHOSPHATE [Concomitant]
     Active Substance: CODEINE PHOSPHATE
     Indication: COUGH
     Route: 048
  9. MIDAZOLAM HYDROCHLORIDE. [Concomitant]
     Active Substance: MIDAZOLAM HYDROCHLORIDE
     Dosage: 1.00 MG QH
     Route: 042
     Dates: start: 20161001, end: 20161012
  10. TREMELIMUMAB. [Suspect]
     Active Substance: TREMELIMUMAB
     Indication: NON-SMALL CELL LUNG CANCER
     Route: 042
     Dates: start: 20160915, end: 20160915
  11. AUGMENTIN [Concomitant]
     Active Substance: AMOXICILLIN\CLAVULANATE POTASSIUM
     Indication: ANTIBIOTIC PROPHYLAXIS
     Dosage: 1200.00 MG TID
     Route: 042
     Dates: start: 20160930, end: 20161001
  12. SENNA [Concomitant]
     Active Substance: SENNA LEAF\SENNOSIDES\SENNOSIDES A AND B
     Indication: CONSTIPATION PROPHYLAXIS
     Dosage: 15.0MG AS REQUIRED
     Route: 048
     Dates: start: 20160909, end: 20160914
  13. HYDROCORTISONE. [Concomitant]
     Active Substance: HYDROCORTISONE
     Indication: ALLERGY PROPHYLAXIS
     Dosage: 100.0MG ONCE/SINGLE ADMINISTRATION
     Route: 042
     Dates: start: 20160930, end: 20160930
  14. HYDROCORTISONE. [Concomitant]
     Active Substance: HYDROCORTISONE
     Indication: PNEUMONITIS
     Dosage: 100.00 MG ONCE  ONCE/SINGLE ADMINISTRATION
     Route: 042
     Dates: start: 20161001, end: 20161001
  15. HYDROCORTISONE. [Concomitant]
     Active Substance: HYDROCORTISONE
     Indication: PNEUMONITIS
     Dosage: 200.00 MG Q4H  ONCE/SINGLE ADMINISTRATION
     Route: 042
     Dates: start: 20161001, end: 20161002
  16. MORPHINE [Concomitant]
     Active Substance: MORPHINE
     Dosage: 1.00 MG QH
     Route: 042
     Dates: start: 20161001, end: 20161012
  17. HYDROCORTISONE. [Concomitant]
     Active Substance: HYDROCORTISONE
     Indication: ALLERGY PROPHYLAXIS
     Dosage: 100.00 MG ONCE  ONCE/SINGLE ADMINISTRATION
     Route: 042
     Dates: start: 20161001, end: 20161001
  18. HYDROCORTISONE. [Concomitant]
     Active Substance: HYDROCORTISONE
     Indication: ALLERGY PROPHYLAXIS
     Dosage: 200.00 MG Q4H  ONCE/SINGLE ADMINISTRATION
     Route: 042
     Dates: start: 20161001, end: 20161002
  19. PANTOLOC [Concomitant]
     Active Substance: PANTOPRAZOLE SODIUM
     Indication: ABDOMINAL DISCOMFORT
     Route: 048
  20. MEDI4736 [Suspect]
     Active Substance: DURVALUMAB
     Indication: NON-SMALL CELL LUNG CANCER
     Route: 042
     Dates: start: 20160915, end: 20160915
  21. FOLIC ACID. [Concomitant]
     Active Substance: FOLIC ACID
     Indication: PREMEDICATION
     Route: 048
     Dates: start: 20160909, end: 20160914

REACTIONS (2)
  - Acute kidney injury [Fatal]
  - Pneumonitis [Fatal]

NARRATIVE: CASE EVENT DATE: 20161001
